FAERS Safety Report 7302091-7 (Version None)
Quarter: 2011Q1

REPORT INFORMATION
  Report Type: 
  Country: None (occurrence: None)
  Receive Date: 20110218
  Receipt Date: 20110209
  Transmission Date: 20110831
  Serious: Yes (Hospitalization, Other)
  Sender: FDA-Public Use
  Company Number: CZ-PURDUE-GBR-2011-0007737

PATIENT
  Age: 45 Year
  Sex: Male

DRUGS (4)
  1. MORPHINE SULFATE [Suspect]
     Dosage: 3.5 MG, DAILY
  2. MORPHINE SULFATE [Suspect]
     Dosage: 0.5 MG, DAILY
  3. MORPHINE SULFATE [Suspect]
     Dosage: 2.5 MG, DAILY
  4. MORPHINE SULFATE [Suspect]
     Indication: PAIN
     Dosage: 16 MG, DAILY

REACTIONS (5)
  - INADEQUATE ANALGESIA [None]
  - INFECTION [None]
  - BLOOD TESTOSTERONE DECREASED [None]
  - MENINGITIS [None]
  - LIBIDO DISORDER [None]
